FAERS Safety Report 11673494 (Version 2)
Quarter: 2016Q3

REPORT INFORMATION
  Report Type: Spontaneous
  Country: JP (occurrence: JP)
  Receive Date: 20151028
  Receipt Date: 20160823
  Transmission Date: 20161109
  Serious: Yes (Other)
  Sender: FDA-Public Use
  Company Number: PHJP2015JP018722

PATIENT
  Age: 46 Year
  Sex: Female

DRUGS (4)
  1. EVEROLIMUS [Suspect]
     Active Substance: EVEROLIMUS
     Dosage: 5 MG, UNK
     Route: 048
  2. EXEMESTANE. [Suspect]
     Active Substance: EXEMESTANE
     Indication: BREAST CANCER RECURRENT
     Dosage: UNK
     Route: 065
     Dates: start: 201508
  3. EVEROLIMUS [Suspect]
     Active Substance: EVEROLIMUS
     Indication: BREAST CANCER RECURRENT
     Dosage: UNK
     Route: 048
     Dates: start: 201508
  4. RANMARK [Suspect]
     Active Substance: DENOSUMAB
     Indication: METASTASES TO BONE
     Dosage: UNK
     Route: 065
     Dates: start: 201508

REACTIONS (7)
  - Malignant neoplasm progression [Unknown]
  - Nervous system disorder [Unknown]
  - Metastases to liver [Unknown]
  - Metastases to bone [Unknown]
  - Hepatic function abnormal [Recovering/Resolving]
  - Stomatitis [Unknown]
  - Platelet count decreased [Recovering/Resolving]
